FAERS Safety Report 21465467 (Version 4)
Quarter: 2022Q4

REPORT INFORMATION
  Report Type: Report from Study
  Country: JP (occurrence: JP)
  Receive Date: 20221017
  Receipt Date: 20221228
  Transmission Date: 20230112
  Serious: Yes (Life-Threatening, Other)
  Sender: FDA-Public Use
  Company Number: JP-TAKEDA-2022TJP075533

PATIENT
  Age: 72 Year
  Sex: Male
  Weight: 63.4 kg

DRUGS (66)
  1. PONATINIB [Suspect]
     Active Substance: PONATINIB
     Indication: Philadelphia positive acute lymphocytic leukaemia
     Dosage: 30 MILLIGRAM, QD
     Route: 048
     Dates: start: 20220526, end: 20220601
  2. PONATINIB [Suspect]
     Active Substance: PONATINIB
     Dosage: 15 MILLIGRAM, QD
     Route: 048
     Dates: start: 20220622, end: 20221013
  3. CYTARABINE [Suspect]
     Active Substance: CYTARABINE
     Indication: Philadelphia positive acute lymphocytic leukaemia
     Dosage: 250 MILLIGRAM/SQ. METER, BID
     Route: 042
     Dates: start: 20220926, end: 20220927
  4. CYTARABINE [Suspect]
     Active Substance: CYTARABINE
     Indication: Prophylaxis
     Dosage: 250 MILLIGRAM/SQ. METER, BID
     Route: 042
     Dates: start: 20220926, end: 20220926
  5. CYTARABINE [Suspect]
     Active Substance: CYTARABINE
     Dosage: 250 MILLIGRAM/SQ. METER, BID
     Route: 042
     Dates: start: 20220926, end: 20220926
  6. CYTARABINE [Suspect]
     Active Substance: CYTARABINE
     Dosage: 250 MILLIGRAM/SQ. METER, BID
     Route: 042
     Dates: start: 20220928, end: 20220928
  7. CYTARABINE [Suspect]
     Active Substance: CYTARABINE
     Dosage: 250 MILLIGRAM/SQ. METER, BID
     Route: 042
     Dates: start: 20220930, end: 20220930
  8. CYTARABINE [Suspect]
     Active Substance: CYTARABINE
     Dosage: 40 MILLIGRAM, Q2WEEKS
     Route: 037
     Dates: start: 20220526, end: 20221011
  9. DEXAMETHASONE [Suspect]
     Active Substance: DEXAMETHASONE
     Indication: Philadelphia positive acute lymphocytic leukaemia
     Dosage: 3.3 MILLIGRAM, Q2WEEKS
     Route: 037
     Dates: start: 20220526, end: 20221011
  10. DEXAMETHASONE [Suspect]
     Active Substance: DEXAMETHASONE
     Indication: Prophylaxis
     Dosage: 20 MILLIGRAM
     Route: 048
     Dates: start: 20220526, end: 20220529
  11. DEXAMETHASONE [Suspect]
     Active Substance: DEXAMETHASONE
     Dosage: 20 MILLIGRAM
     Route: 048
     Dates: start: 20220607, end: 20220610
  12. DEXAMETHASONE [Suspect]
     Active Substance: DEXAMETHASONE
     Dosage: 20 MILLIGRAM
     Route: 048
     Dates: start: 20220629, end: 20220702
  13. DEXAMETHASONE [Suspect]
     Active Substance: DEXAMETHASONE
     Dosage: 20 MILLIGRAM
     Route: 048
     Dates: start: 20220709, end: 20220712
  14. DEXAMETHASONE [Suspect]
     Active Substance: DEXAMETHASONE
     Dosage: 20 MILLIGRAM
     Route: 048
     Dates: start: 20220727, end: 20220730
  15. DEXAMETHASONE [Suspect]
     Active Substance: DEXAMETHASONE
     Dosage: 20 MILLIGRAM
     Route: 048
     Dates: start: 20220806, end: 20220809
  16. VINCRISTINE [Suspect]
     Active Substance: VINCRISTINE
     Indication: Product used for unknown indication
     Dosage: 1.4 MILLIGRAM/SQ. METER
     Route: 042
     Dates: start: 20220526, end: 20220810
  17. METHOTREXATE [Suspect]
     Active Substance: METHOTREXATE
     Indication: Prophylaxis
     Dosage: 15 MILLIGRAM, Q2WEEKS
     Route: 037
     Dates: start: 20220626, end: 20221011
  18. METHOTREXATE [Suspect]
     Active Substance: METHOTREXATE
     Dosage: 250 MILLIGRAM/SQ. METER
     Route: 042
     Dates: start: 20220822, end: 20220823
  19. BILASTINE [Concomitant]
     Active Substance: BILASTINE
     Indication: Sinusitis
     Dosage: 20 MILLIGRAM, QD
     Route: 048
     Dates: start: 20210413, end: 20220601
  20. BILASTINE [Concomitant]
     Active Substance: BILASTINE
     Dosage: 20 MILLIGRAM, QD
     Route: 048
     Dates: start: 20220630, end: 20221014
  21. CARBOCYSTEINE [Concomitant]
     Active Substance: CARBOCYSTEINE
     Indication: Sinusitis
     Dosage: 500 MILLIGRAM, BID
     Route: 048
     Dates: start: 20220413, end: 20220601
  22. CARBOCYSTEINE [Concomitant]
     Active Substance: CARBOCYSTEINE
     Dosage: 500 MILLIGRAM
     Route: 048
     Dates: start: 20220614, end: 20220629
  23. CARBOCYSTEINE [Concomitant]
     Active Substance: CARBOCYSTEINE
     Dosage: 500 MILLIGRAM, BID
     Route: 048
     Dates: start: 20220630, end: 20221014
  24. AMLODIPINE BESYLATE [Concomitant]
     Active Substance: AMLODIPINE BESYLATE
     Indication: Hypertension
     Dosage: 5 MILLIGRAM, QD
     Route: 048
     Dates: start: 20220518, end: 20220601
  25. FEBUXOSTAT [Concomitant]
     Active Substance: FEBUXOSTAT
     Indication: Prophylaxis
     Dosage: 60 MILLIGRAM, QD
     Route: 048
     Dates: start: 20220519, end: 20220601
  26. LANSOPRAZOLE [Concomitant]
     Active Substance: LANSOPRAZOLE
     Indication: Gastritis prophylaxis
     Dosage: 10 MILLIGRAM, QD
     Route: 048
     Dates: start: 20220519, end: 20220602
  27. TELMISARTAN [Concomitant]
     Active Substance: TELMISARTAN
     Indication: Hypertension
     Dosage: 40 MILLIGRAM, QD
     Route: 048
     Dates: start: 20220521, end: 20220601
  28. LEVOTHYROXINE SODIUM [Concomitant]
     Active Substance: LEVOTHYROXINE SODIUM
     Indication: Autoimmune thyroiditis
     Dosage: 25 MICROGRAM, QD
     Route: 048
     Dates: start: 20220521, end: 20220601
  29. LEVOTHYROXINE SODIUM [Concomitant]
     Active Substance: LEVOTHYROXINE SODIUM
     Dosage: 25 MICROGRAM, QD
     Route: 048
     Dates: start: 20220607, end: 20221014
  30. LEVOTHYROXINE SODIUM [Concomitant]
     Active Substance: LEVOTHYROXINE SODIUM
     Dosage: 25 MICROGRAM, QD
     Route: 048
     Dates: start: 20221015
  31. LIDOCAINE HYDROCHLORIDE [Concomitant]
     Active Substance: LIDOCAINE HYDROCHLORIDE
     Indication: Local anaesthesia
     Dosage: 10 MILLILITER, PRN
     Route: 058
     Dates: start: 20220520, end: 20221116
  32. GRANISETRON HYDROCHLORIDE [Concomitant]
     Active Substance: GRANISETRON HYDROCHLORIDE
     Indication: Prophylaxis of nausea and vomiting
     Dosage: 3 MILLIGRAM
     Route: 042
     Dates: start: 20220526
  33. INSULIN ASPART [Concomitant]
     Active Substance: INSULIN ASPART
     Indication: Type 2 diabetes mellitus
     Dosage: UNK INTERNATIONAL UNIT, PRN
     Route: 058
     Dates: start: 20220527, end: 20221001
  34. FLUCONAZOLE [Concomitant]
     Active Substance: FLUCONAZOLE
     Indication: Antifungal prophylaxis
     Dosage: 200 MILLIGRAM, QD
     Route: 048
     Dates: start: 20220527, end: 20220601
  35. FLUCONAZOLE [Concomitant]
     Active Substance: FLUCONAZOLE
     Dosage: 20 MILLIGRAM, QD
     Route: 048
     Dates: start: 20220607, end: 20221014
  36. FLUCONAZOLE [Concomitant]
     Active Substance: FLUCONAZOLE
     Dosage: 200 MILLIGRAM, QD
     Route: 048
     Dates: start: 20221025
  37. SULFAMETHOXAZOLE\TRIMETHOPRIM [Concomitant]
     Active Substance: SULFAMETHOXAZOLE\TRIMETHOPRIM
     Indication: Antibiotic prophylaxis
     Dosage: 1 DOSAGE FORM, QD
     Route: 048
     Dates: start: 20220527, end: 20220601
  38. SULFAMETHOXAZOLE\TRIMETHOPRIM [Concomitant]
     Active Substance: SULFAMETHOXAZOLE\TRIMETHOPRIM
     Indication: Antibiotic prophylaxis
     Dosage: 1 DOSAGE FORM, QD
     Route: 048
     Dates: start: 20220607, end: 20221014
  39. SULFAMETHOXAZOLE\TRIMETHOPRIM [Concomitant]
     Active Substance: SULFAMETHOXAZOLE\TRIMETHOPRIM
     Dosage: 1 DOSAGE FORM, QD
     Route: 048
     Dates: start: 20221018
  40. DEXCHLORPHENIRAMINE MALEATE [Concomitant]
     Active Substance: DEXCHLORPHENIRAMINE MALEATE
     Indication: Allergy prophylaxis
     Dosage: 5 MILLIGRAM, SINGLE
     Route: 058
     Dates: start: 20220528, end: 20220528
  41. DEXCHLORPHENIRAMINE MALEATE [Concomitant]
     Active Substance: DEXCHLORPHENIRAMINE MALEATE
     Dosage: UNK
  42. OMEPRAZOLE SODIUM [Concomitant]
     Active Substance: OMEPRAZOLE SODIUM
     Indication: Gastritis prophylaxis
     Dosage: 20 MILLIGRAM, QD
     Route: 042
     Dates: start: 20220602, end: 20220602
  43. OMEPRAZOLE SODIUM [Concomitant]
     Active Substance: OMEPRAZOLE SODIUM
     Dosage: 20 MILLIGRAM, BID
     Route: 042
     Dates: start: 20220603, end: 20220604
  44. AMINO ACIDS\CARBOHYDRATES\MINERALS\SOYBEAN OIL\VITAMINS [Concomitant]
     Active Substance: AMINO ACIDS\CARBOHYDRATES\MINERALS\SOYBEAN OIL\VITAMINS
     Indication: Nutritional supplementation
     Dosage: 80 GRAM, BID
     Route: 048
     Dates: start: 20220603, end: 20220608
  45. MAGNESIUM OXIDE [Concomitant]
     Active Substance: MAGNESIUM OXIDE
     Indication: Constipation
     Dosage: 330 MILLIGRAM, PRN
     Route: 048
     Dates: start: 20220608
  46. DEXTROSE\SODIUM CHLORIDE\SODIUM LACTATE [Concomitant]
     Active Substance: DEXTROSE\SODIUM CHLORIDE\SODIUM LACTATE
     Indication: Prophylaxis against dehydration
     Dosage: 500 MILLILITER, QD
     Route: 041
     Dates: start: 20220620, end: 20220704
  47. DEXTROSE\SODIUM CHLORIDE\SODIUM LACTATE [Concomitant]
     Active Substance: DEXTROSE\SODIUM CHLORIDE\SODIUM LACTATE
     Indication: Dehydration
     Dosage: 500 MILLILITER, QD
     Route: 042
     Dates: start: 20220713, end: 20220713
  48. NIFEDIPINE [Concomitant]
     Active Substance: NIFEDIPINE
     Indication: Hypertension
     Dosage: 20 MILLIGRAM, QD
     Route: 048
     Dates: start: 20220711, end: 20220711
  49. BENIDIPINE HYDROCHLORIDE [Concomitant]
     Active Substance: BENIDIPINE HYDROCHLORIDE
     Indication: Hypertension
     Dosage: 2 MILLIGRAM, QD
     Route: 048
     Dates: start: 20220712, end: 20220716
  50. HYALURONATE SODIUM [Concomitant]
     Active Substance: HYALURONATE SODIUM
     Indication: Dry eye
     Dosage: UNK
     Route: 047
     Dates: start: 20220709
  51. DILTIAZEM HYDROCHLORIDE [Concomitant]
     Active Substance: DILTIAZEM HYDROCHLORIDE
     Indication: Hypertension
     Dosage: 100 MILLIGRAM, QD
     Route: 048
     Dates: start: 20220717, end: 20220816
  52. SODIUM BICARBONATE [Concomitant]
     Active Substance: SODIUM BICARBONATE
     Indication: Prophylaxis of nausea and vomiting
     Dosage: 40 MILLIGRAM, SINGLE
     Route: 042
     Dates: start: 20220821, end: 20220822
  53. SODIUM BICARBONATE [Concomitant]
     Active Substance: SODIUM BICARBONATE
     Dosage: 120 MILLIGRAM, QD
     Route: 042
     Dates: start: 20220822, end: 20220826
  54. METHYLPREDNISOLONE SODIUM SUCCINATE [Concomitant]
     Active Substance: METHYLPREDNISOLONE SODIUM SUCCINATE
     Indication: Prophylaxis of nausea and vomiting
     Dosage: 50 MILLIGRAM, SINGLE
     Route: 042
     Dates: start: 20220822, end: 20220822
  55. METHYLPREDNISOLONE SODIUM SUCCINATE [Concomitant]
     Active Substance: METHYLPREDNISOLONE SODIUM SUCCINATE
     Dosage: 50 MILLIGRAM, 3/WEEK
     Route: 042
     Dates: start: 20220926
  56. ACETAZOLAMIDE SODIUM [Concomitant]
     Active Substance: ACETAZOLAMIDE SODIUM
     Indication: Prophylaxis
     Dosage: 250 MILLIGRAM, BID
     Route: 042
     Dates: start: 20220822, end: 20220826
  57. LEUCOVORIN CALCIUM [Concomitant]
     Active Substance: LEUCOVORIN CALCIUM
     Indication: Prophylaxis
     Dosage: 48 MILLIGRAM, SINGLE
     Route: 042
     Dates: start: 20220824, end: 20220824
  58. LEUCOVORIN CALCIUM [Concomitant]
     Active Substance: LEUCOVORIN CALCIUM
     Dosage: 15 MILLIGRAM, Q6HR
     Route: 042
     Dates: start: 20220824, end: 20220826
  59. PARAFFIN [Concomitant]
     Active Substance: PARAFFIN
     Indication: Prophylaxis
     Dosage: UNK
     Route: 061
     Dates: start: 20220828
  60. GRANISETRON HYDROCHLORIDE [Concomitant]
     Active Substance: GRANISETRON HYDROCHLORIDE
     Indication: Prophylaxis of nausea and vomiting
     Dosage: 3 MILLIGRAM, 3/WEEK
     Route: 042
     Dates: start: 20220926
  61. FLUOROMETHOLONE [Concomitant]
     Active Substance: FLUOROMETHOLONE
     Indication: Conjunctivitis
     Dosage: 2 DOSAGE FORM, PRN
     Route: 047
     Dates: start: 20220926, end: 20221007
  62. CALCIUM CHLORIDE ANHYDROUS\POTASSIUM CHLORIDE\SODIUM CHLORIDE\SODIUM L [Concomitant]
     Active Substance: CALCIUM CHLORIDE ANHYDROUS\POTASSIUM CHLORIDE\SODIUM CHLORIDE\SODIUM LACTATE
     Indication: Chemotherapy
     Dosage: 1000 MILLILITER, QD
     Route: 041
     Dates: start: 20220925
  63. SOLDEM 3A [Concomitant]
     Active Substance: CARBOHYDRATES\POTASSIUM CHLORIDE\SODIUM CHLORIDE\SODIUM LACTATE
     Indication: Chemotherapy
     Dosage: 500 MILLILITER, QD
     Route: 041
     Dates: start: 20220925
  64. DEXCHLORPHENIRAMINE MALEATE [Concomitant]
     Active Substance: DEXCHLORPHENIRAMINE MALEATE
     Indication: Hypersensitivity
     Dosage: 5 MILLIGRAM, PRN
     Route: 042
     Dates: start: 20221008, end: 20221011
  65. FUROSEMIDE [Concomitant]
     Active Substance: FUROSEMIDE
     Indication: Oedema
     Dosage: 10 MILLIGRAM, PRN
     Dates: start: 20220927, end: 20221001
  66. FUROSEMIDE [Concomitant]
     Active Substance: FUROSEMIDE
     Dosage: 20 MILLIGRAM, PRN
     Route: 042
     Dates: start: 20220927, end: 20221001

REACTIONS (1)
  - Myocardial infarction [Recovering/Resolving]

NARRATIVE: CASE EVENT DATE: 20221014
